FAERS Safety Report 5203238-9 (Version None)
Quarter: 2006Q4

REPORT INFORMATION
  Report Type: 
  Country: None (occurrence: None)
  Receive Date: 20061016
  Receipt Date: 20060405
  Transmission Date: 20070319
  Serious: Yes (Other)
  Sender: FDA-Public Use
  Company Number: 2006031733

PATIENT
  Age: 50 Year
  Sex: Female

DRUGS (9)
  1. NEURONTIN [Suspect]
     Indication: DEPRESSION
  2. RISPERDAL [Concomitant]
  3. TOPROL-XL [Concomitant]
  4. POTASSIUM CHLORIDE [Concomitant]
  5. EFFEXOR [Concomitant]
  6. LOTREL [Concomitant]
  7. PARECOXIB (PARECOXIB) [Concomitant]
  8. AMITRIPTYLINE HCL [Concomitant]
  9. DIURETICS (DIURETICS) [Concomitant]

REACTIONS (1)
  - SUICIDAL IDEATION [None]
